FAERS Safety Report 19776705 (Version 1)
Quarter: 2021Q3

REPORT INFORMATION
  Report Type: Not Available
  Country: IT (occurrence: IT)
  Receive Date: 20210901
  Receipt Date: 20210901
  Transmission Date: 20211014
  Serious: Yes (Other)
  Sender: FDA-Public Use
  Company Number: IT-AKORN-170850

PATIENT
  Age: 54 Year
  Sex: Male

DRUGS (1)
  1. MIDAZOLAM HYDROCHLORIDE CIV INJECTION [Suspect]
     Active Substance: MIDAZOLAM HYDROCHLORIDE

REACTIONS (6)
  - Electrocardiogram ST segment elevation [Recovered/Resolved]
  - Cardio-respiratory arrest [Recovered/Resolved]
  - Electrocardiogram QRS complex prolonged [Recovered/Resolved]
  - Bradycardia [Recovered/Resolved]
  - Kounis syndrome [Recovered/Resolved]
  - Anaphylactic reaction [Recovered/Resolved]
